FAERS Safety Report 4374439-7 (Version None)
Quarter: 2004Q2

REPORT INFORMATION
  Report Type: 
  Country: None (occurrence: None)
  Receive Date: 20040608
  Receipt Date: 20040608
  Transmission Date: 20050107
  Serious: Yes (Hospitalization)
  Sender: FDA-Public Use
  Company Number: None

PATIENT
  Sex: Male
  Weight: 120.4 kg

DRUGS (14)
  1. PREDNISONE [Suspect]
     Indication: B-CELL LYMPHOMA
     Dosage: 40 MG D1-D14 PO
     Route: 048
     Dates: start: 20040427, end: 20040510
  2. DOXORUBICIN HCL [Suspect]
     Indication: B-CELL LYMPHOMA
     Dosage: 55 MG D1 AND D8 IV
     Route: 042
     Dates: start: 20040427
  3. DOXORUBICIN HCL [Suspect]
     Indication: B-CELL LYMPHOMA
     Dosage: 55 MG D1 AND D8 IV
     Route: 042
     Dates: start: 20040504
  4. DOXORUBICIN HCL [Suspect]
  5. CYTOXAN [Suspect]
     Indication: B-CELL LYMPHOMA
     Dosage: 1430 MG D1 + D8 IV
     Route: 042
     Dates: start: 20040427
  6. CYTOXAN [Suspect]
     Indication: B-CELL LYMPHOMA
     Dosage: 1430 MG D1 + D8 IV
     Route: 042
     Dates: start: 20040504
  7. CYTOXAN [Suspect]
  8. ETOPOSIDE [Suspect]
     Indication: B-CELL LYMPHOMA
     Dosage: 264 MG D1 + D8 IV
     Route: 042
     Dates: start: 20040427
  9. ETOPOSIDE [Suspect]
     Indication: B-CELL LYMPHOMA
     Dosage: 264 MG D1 + D8 IV
     Route: 042
     Dates: start: 20040504
  10. ETOPOSIDE [Suspect]
  11. ANZEMET [Concomitant]
  12. TENORMIN [Concomitant]
  13. ZOCOR [Concomitant]
  14. BACTRIM DS [Concomitant]

REACTIONS (9)
  - ANAEMIA [None]
  - DIZZINESS [None]
  - GASTROENTERITIS [None]
  - HYPERLIPIDAEMIA [None]
  - HYPERTENSION [None]
  - NAUSEA [None]
  - NEUTROPENIA [None]
  - VOMITING [None]
  - WHITE BLOOD CELL COUNT DECREASED [None]
